FAERS Safety Report 21017431 (Version 2)
Quarter: 2024Q3

REPORT INFORMATION
  Report Type: Spontaneous
  Country: US (occurrence: US)
  Receive Date: 20220628
  Receipt Date: 20240715
  Transmission Date: 20241016
  Serious: No
  Sender: BIOCON
  Company Number: US-MYLANLABS-2022M1046416

PATIENT
  Sex: Female

DRUGS (2)
  1. FULPHILA [Suspect]
     Active Substance: PEGFILGRASTIM-JMDB
     Indication: Product used for unknown indication
     Dosage: 6 MILLIGRAM(ROUTE:INJECTION)
     Route: 065
     Dates: start: 20220324, end: 20220526
  2. DEVICE [Suspect]
     Active Substance: DEVICE
     Indication: Product used for unknown indication

REACTIONS (1)
  - Hypersensitivity [Recovered/Resolved]
